FAERS Safety Report 9695845 (Version 2)
Quarter: 2013Q4

REPORT INFORMATION
  Report Type: Spontaneous
  Country: CH (occurrence: CH)
  Receive Date: 20131119
  Receipt Date: 20131126
  Transmission Date: 20140711
  Serious: Yes (Other)
  Sender: FDA-Public Use
  Company Number: CH-JNJFOC-20131107692

PATIENT
  Age: 37 Year
  Sex: Male
  Weight: 74 kg

DRUGS (1)
  1. REMICADE [Suspect]
     Indication: CROHN^S DISEASE
     Dosage: DOSE 5 MG/KG
     Route: 042
     Dates: start: 20080309

REACTIONS (1)
  - Intestinal adenocarcinoma [Unknown]
